FAERS Safety Report 4786934-7 (Version None)
Quarter: 2005Q3

REPORT INFORMATION
  Report Type: 
  Country: None (occurrence: None)
  Receive Date: 20050930
  Receipt Date: 20050930
  Transmission Date: 20060218
  Serious: Yes (Hospitalization, Other)
  Sender: FDA-Public Use
  Company Number: None

PATIENT
  Sex: Male
  Weight: 82 kg

DRUGS (14)
  1. CYCLOPHOSPHAMIDE [Suspect]
     Indication: ACUTE LYMPHOCYTIC LEUKAEMIA
     Dosage: SEE IMAGE
     Route: 042
     Dates: start: 20050831, end: 20050831
  2. ALLOPURINOL [Suspect]
     Dosage: SEE IMAGE
     Route: 048
     Dates: start: 20050831
  3. DAUNORUBICIN HCL [Suspect]
     Dosage: SEE IMAGE
     Route: 042
     Dates: start: 20050831
  4. VINCRISTINE [Suspect]
     Dosage: SEE IMAGE
     Route: 042
     Dates: start: 20050831
  5. DEXAMETHASONE [Suspect]
     Dosage: SEE IMAGE
     Route: 048
     Dates: start: 20050831
  6. L-ASPARAGINASE [Suspect]
     Dosage: SEE IMAGE
     Route: 058
     Dates: start: 20050831, end: 20050914
  7. G-CSF [Suspect]
     Dosage: SEE IMAGES
     Route: 058
     Dates: start: 20050831
  8. METHOTREXATE [Suspect]
     Dosage: SEE IMAGE
     Route: 037
     Dates: start: 20050831, end: 20050831
  9. CYCLOPHOSPHAMIDE [Suspect]
     Dosage: SEE IMAGE
     Route: 042
     Dates: start: 20050831
  10. CYTARABINE [Suspect]
     Dosage: SEE IMAGE
     Route: 042
     Dates: start: 20050831, end: 20050831
  11. L-ASPARAGINASE [Suspect]
     Dosage: SEE IMAGE
     Route: 058
     Dates: start: 20050831
  12. DEXAMETHASONE [Suspect]
     Dosage: SEE IMAGE
     Route: 047
     Dates: start: 20050831
  13. G-CSF [Suspect]
     Dosage: SEE IMAGE
     Route: 058
     Dates: start: 20050831
  14. COTRIMOXAZOLE DS [Suspect]
     Dosage: SEE IMAGE
     Route: 048
     Dates: start: 20050831

REACTIONS (8)
  - BLOOD GLUCOSE DECREASED [None]
  - HAEMOGLOBIN DECREASED [None]
  - INCORRECT DOSE ADMINISTERED [None]
  - LIPASE INCREASED [None]
  - NAUSEA [None]
  - ORAL INTAKE REDUCED [None]
  - PYREXIA [None]
  - VOMITING [None]
